FAERS Safety Report 7092473-3 (Version None)
Quarter: 2010Q4

REPORT INFORMATION
  Report Type: 
  Country: None (occurrence: None)
  Receive Date: 20101108
  Receipt Date: 20101108
  Transmission Date: 20110411
  Serious: Yes (Life-Threatening)
  Sender: FDA-Public Use
  Company Number: None

PATIENT
  Sex: Female

DRUGS (2)
  1. RECOTHROM 5000 IU ZYMOGEN [Suspect]
  2. INSULIN [Concomitant]

REACTIONS (1)
  - HYPOTENSION [None]
